FAERS Safety Report 7002284 (Version 4)
Quarter: 2012Q4

REPORT INFORMATION
  Report Type: 
  Country: US (occurrence: US)
  Receive Date: 20050706
  Receipt Date: 20121012
  Transmission Date: 20130627
  Serious: Yes (Other)
  Sender: FDA-Public Use
  Company Number: US-PFIZER INC-2005093292

PATIENT
  Age: 56 Year
  Sex: Female
  Weight: 54 kg

DRUGS (9)
  1. PROVERA [Suspect]
     Indication: HORMONE REPLACEMENT THERAPY
     Dosage: UNK
     Route: 048
     Dates: start: 198808, end: 200105
  2. MEDROXYPROGESTERONE ACETATE [Suspect]
     Indication: HORMONE REPLACEMENT THERAPY
     Dosage: UNK
     Route: 048
     Dates: start: 198808, end: 200105
  3. PREMARIN [Suspect]
     Indication: HORMONE REPLACEMENT THERAPY
     Dosage: UNK
     Route: 048
     Dates: start: 198808, end: 200105
  4. MEDROXYPROGESTERONE ACETATE [Suspect]
     Indication: HORMONE REPLACEMENT THERAPY
     Dosage: UNK
     Route: 048
     Dates: start: 198808, end: 200105
  5. CYCRIN [Suspect]
     Indication: HORMONE REPLACEMENT THERAPY
     Dosage: UNK
  6. XANAX [Concomitant]
     Indication: ANXIETY
     Dosage: UNK
     Dates: start: 1992
  7. CIPRO [Concomitant]
     Indication: BLADDER DISORDER
     Dosage: UNK
     Dates: start: 1998, end: 2003
  8. IMIPRAMINE [Concomitant]
     Indication: DEPRESSION
     Dosage: UNK
     Dates: start: 1992
  9. IMIPRAMINE [Concomitant]
     Indication: BLADDER DISORDER

REACTIONS (1)
  - Breast cancer female [Unknown]
